FAERS Safety Report 4844662-3 (Version None)
Quarter: 2005Q4

REPORT INFORMATION
  Report Type: 
  Country: None (occurrence: None)
  Receive Date: 20051205
  Receipt Date: 20050301
  Transmission Date: 20060501
  Serious: Yes (Other)
  Sender: FDA-Public Use
  Company Number: US-BOEHRINGER INGELHEIM PHARMACEUTICALS, INC.-2005-BP-15997BP

PATIENT
  Sex: Female

DRUGS (2)
  1. METACAM ORAL SUSPENSION [Suspect]
     Indication: ANTIINFLAMMATORY THERAPY
     Dates: start: 20050301
  2. MEDICINALPRODUCT NOT SPECIFIED BY SENDER [Concomitant]

REACTIONS (5)
  - ABORTION INDUCED [None]
  - ACCIDENTAL EXPOSURE [None]
  - DRUG EXPOSURE DURING PREGNANCY [None]
  - EYE BURNS [None]
  - OCULAR HYPERAEMIA [None]
